FAERS Safety Report 20862771 (Version 1)
Quarter: 2022Q2

REPORT INFORMATION
  Report Type: Spontaneous
  Country: US (occurrence: None)
  Receive Date: 20220523
  Receipt Date: 20220523
  Transmission Date: 20220720
  Serious: Yes (Hospitalization)
  Sender: FDA-Public Use
  Company Number: None

PATIENT
  Age: 82 Year
  Sex: Male
  Weight: 71 kg

DRUGS (1)
  1. PREDNISONE [Suspect]
     Active Substance: PREDNISONE
     Indication: Rash
     Route: 048
     Dates: start: 20220203, end: 20220228

REACTIONS (5)
  - Syncope [None]
  - COVID-19 [None]
  - Hyperglycaemia [None]
  - Polyuria [None]
  - Intentional overdose [None]

NARRATIVE: CASE EVENT DATE: 20220219
